FAERS Safety Report 7437553-5 (Version None)
Quarter: 2011Q2

REPORT INFORMATION
  Report Type: 
  Country: None (occurrence: None)
  Receive Date: 20110426
  Receipt Date: 20110414
  Transmission Date: 20111010
  Serious: Yes (Other)
  Sender: FDA-Public Use
  Company Number: GB-GILEAD-E2B_00001200

PATIENT
  Age: 36 Year
  Sex: Male

DRUGS (4)
  1. TRUVADA [Suspect]
     Indication: HIV INFECTION
     Dosage: 1DF=TENOFOVIR DISOPROXIL 245 MG/EMTRICITABINE 200 MG
  2. ATAZANAVIR [Suspect]
  3. RITONAVIR [Suspect]
  4. DARUNAVIR [Suspect]

REACTIONS (1)
  - JAUNDICE [None]
